FAERS Safety Report 18926891 (Version 1)
Quarter: 2021Q1

REPORT INFORMATION
  Report Type: Spontaneous
  Country: CA (occurrence: CA)
  Receive Date: 20210223
  Receipt Date: 20210223
  Transmission Date: 20210420
  Serious: Yes (Other)
  Sender: FDA-Public Use
  Company Number: CA-ROCHE-2769026

PATIENT
  Sex: Female
  Weight: 55.1 kg

DRUGS (6)
  1. TRASTUZUMAB EMTANSINE [Suspect]
     Active Substance: ADO-TRASTUZUMAB EMTANSINE
     Indication: BREAST CANCER METASTATIC
     Route: 065
     Dates: start: 202004
  2. PERTUZUMAB. [Suspect]
     Active Substance: PERTUZUMAB
     Indication: BREAST CANCER METASTATIC
     Dosage: ONGOING: YES
     Route: 065
     Dates: start: 202004
  3. TRASTUZUMAB. [Suspect]
     Active Substance: TRASTUZUMAB
     Indication: BREAST CANCER METASTATIC
     Dosage: ONGOING: YES
     Route: 065
     Dates: start: 202004
  4. TUCATINIB [Concomitant]
     Active Substance: TUCATINIB
  5. CAPECITABINE. [Concomitant]
     Active Substance: CAPECITABINE
     Route: 048
  6. TRAZIMERA (UNITED STATES) [Concomitant]
     Indication: BREAST CANCER METASTATIC
     Dosage: 8MG/KG LOADING DOSE FOLLOWED BY 6MG/KG EVERY 3 WEEKS

REACTIONS (1)
  - Nodular regenerative hyperplasia [Unknown]
